FAERS Safety Report 6141257-9 (Version None)
Quarter: 2009Q2

REPORT INFORMATION
  Report Type: 
  Country: None (occurrence: None)
  Receive Date: 20090402
  Receipt Date: 20090325
  Transmission Date: 20091009
  Serious: Yes (Hospitalization, Other)
  Sender: FDA-Public Use
  Company Number: US-WATSON-2009-01994

PATIENT
  Sex: Female

DRUGS (6)
  1. TRAZODONE HYDROCHLORIDE [Suspect]
     Indication: DEPRESSION
     Dosage: UNK
     Route: 065
  2. MECLIZINE (WATSON LABORATORIES) [Suspect]
     Indication: TINNITUS
     Dosage: UNK
     Route: 065
  3. TRAMADOL HCL [Suspect]
     Indication: BACK PAIN
     Dosage: UNK
     Route: 065
  4. PEGINTERFERON ALFA-2A [Suspect]
     Indication: HEPATITIS C
     Dosage: 180 UG, 1/WEEK
     Route: 065
     Dates: start: 20090107, end: 20090119
  5. RIBAVIRIN [Suspect]
     Indication: HEPATITIS C
     Dosage: 1000 MG, DAILY
     Route: 065
     Dates: start: 20090107, end: 20090119
  6. LEXAPRO [Suspect]
     Indication: DEPRESSION
     Dosage: UNK
     Route: 065

REACTIONS (6)
  - ANAEMIA [None]
  - BLADDER NEOPLASM [None]
  - BLOOD URINE PRESENT [None]
  - DYSKINESIA [None]
  - HYPERSENSITIVITY [None]
  - PHARYNGEAL OEDEMA [None]
